FAERS Safety Report 17575579 (Version 1)
Quarter: 2020Q1

REPORT INFORMATION
  Report Type: Spontaneous
  Country: US (occurrence: US)
  Receive Date: 20200317
  Receipt Date: 20200317
  Transmission Date: 20200409
  Serious: Yes (Other)
  Sender: FDA-Public Use
  Company Number: None

PATIENT
  Age: 72 Year
  Sex: Female
  Weight: 122.47 kg

DRUGS (12)
  1. ABILIFY [Concomitant]
     Active Substance: ARIPIPRAZOLE
  2. HYDROCHLOROTHIAZIDE. [Concomitant]
     Active Substance: HYDROCHLOROTHIAZIDE
  3. TUMS [Concomitant]
     Active Substance: CALCIUM CARBONATE
  4. IBUPROPHEN [Concomitant]
     Active Substance: IBUPROFEN
  5. ASPRIN [Concomitant]
     Active Substance: ASPIRIN
  6. DULCOLAX NOS [Concomitant]
     Active Substance: BISACODYL OR DOCUSATE SODIUM
  7. MULTI VITAMINS [Concomitant]
     Active Substance: VITAMINS
  8. NITROSTAT [Concomitant]
     Active Substance: NITROGLYCERIN
  9. MULTI VITAMIN-MINERALS [Concomitant]
  10. SPIRONOLACTONE. [Concomitant]
     Active Substance: SPIRONOLACTONE
  11. METOPROLOL. [Suspect]
     Active Substance: METOPROLOL
     Indication: HYPERTENSION
     Dosage: ?          QUANTITY:1 DF DOSAGE FORM;?
     Route: 048
  12. NITROGLYCERINE [Concomitant]
     Active Substance: NITROGLYCERIN

REACTIONS (2)
  - Blood pressure increased [None]
  - Dizziness [None]
